FAERS Safety Report 8152257-1 (Version None)
Quarter: 2012Q1

REPORT INFORMATION
  Report Type: 
  Country: None (occurrence: None)
  Receive Date: 20120214
  Receipt Date: 20120201
  Transmission Date: 20120608
  Serious: Yes (Other)
  Sender: FDA-Public Use
  Company Number: TCI2012A00084

PATIENT
  Age: 79 Year
  Sex: Male

DRUGS (7)
  1. ACTOS [Suspect]
     Indication: DIABETES MELLITUS
     Dosage: 7.5 MG (7.5 MG, 1 IN 1 D), PER ORAL, 15 MG (15 MG 1 IN 1 D) PER ORAL
     Route: 048
     Dates: start: 20041228, end: 20111220
  2. ACTOS [Suspect]
     Indication: DIABETES MELLITUS
     Dosage: 7.5 MG (7.5 MG, 1 IN 1 D), PER ORAL, 15 MG (15 MG 1 IN 1 D) PER ORAL
     Route: 048
     Dates: start: 20040302, end: 20041227
  3. CELTECT (OXATOMIDE) [Concomitant]
  4. BASEN OD ((VOGLIBOSE) [Concomitant]
  5. VESICARE [Concomitant]
  6. TAMSULOSIN HCL [Concomitant]
  7. TOLTERODINE TARTRATE [Concomitant]

REACTIONS (1)
  - BLADDER TRANSITIONAL CELL CARCINOMA [None]
